FAERS Safety Report 8069190-6 (Version None)
Quarter: 2012Q1

REPORT INFORMATION
  Report Type: 
  Country: None (occurrence: None)
  Receive Date: 20120125
  Receipt Date: 20120119
  Transmission Date: 20120608
  Serious: Yes (Hospitalization)
  Sender: FDA-Public Use
  Company Number: US-AMGEN-USASP2011067636

PATIENT
  Age: 42 Year
  Sex: Female
  Weight: 75.737 kg

DRUGS (6)
  1. ENBREL [Suspect]
     Indication: RHEUMATOID ARTHRITIS
     Dosage: 50 MG, QWK
     Route: 058
     Dates: start: 20060101, end: 20110111
  2. PRILOSEC [Concomitant]
  3. CYMBALTA [Concomitant]
  4. FOLIC ACID [Concomitant]
  5. PREDNISONE [Concomitant]
     Dosage: 5 MG, UNK
  6. VITAMIN D [Concomitant]

REACTIONS (11)
  - BACK PAIN [None]
  - HAEMATOCHEZIA [None]
  - RHEUMATOID ARTHRITIS [None]
  - COLITIS [None]
  - INTERVERTEBRAL DISC PROTRUSION [None]
  - DRUG INEFFECTIVE [None]
  - ABDOMINAL PAIN UPPER [None]
  - ABDOMINAL PAIN [None]
  - ANAEMIA [None]
  - PEPTIC ULCER [None]
  - INJECTION SITE ERYTHEMA [None]
